FAERS Safety Report 13442603 (Version 3)
Quarter: 2017Q2

REPORT INFORMATION
  Report Type: Spontaneous
  Country: US (occurrence: US)
  Receive Date: 20170414
  Receipt Date: 20170607
  Transmission Date: 20170830
  Serious: No
  Sender: FDA-Public Use
  Company Number: US-PFIZER INC-2017159078

PATIENT
  Age: 7 Year
  Sex: Male

DRUGS (1)
  1. QUILLIVANT XR [Suspect]
     Active Substance: METHYLPHENIDATE HYDROCHLORIDE
     Indication: ATTENTION DEFICIT/HYPERACTIVITY DISORDER
     Dosage: 25 MG, 1X/DAY
     Dates: start: 201701, end: 201703

REACTIONS (9)
  - Anger [Recovered/Resolved]
  - Frustration tolerance decreased [Recovered/Resolved]
  - Depressed mood [Recovered/Resolved]
  - Drug effect incomplete [Unknown]
  - Educational problem [Recovered/Resolved]
  - Psychiatric symptom [Recovered/Resolved]
  - Emotional disorder [Recovered/Resolved]
  - Disturbance in attention [Recovered/Resolved]
  - Dyslexia [Unknown]

NARRATIVE: CASE EVENT DATE: 2017
